FAERS Safety Report 18257642 (Version 2)
Quarter: 2020Q3

REPORT INFORMATION
  Report Type: Spontaneous
  Country: UA (occurrence: UA)
  Receive Date: 20200911
  Receipt Date: 20200924
  Transmission Date: 20201103
  Serious: Yes (Hospitalization, Other)
  Sender: FDA-Public Use
  Company Number: UA-ASTRAZENECA-2020SF13590

PATIENT
  Sex: Male

DRUGS (1)
  1. BRILINTA [Suspect]
     Active Substance: TICAGRELOR
     Indication: ACUTE CORONARY SYNDROME
     Dosage: 90 MG LOADING DOSE
     Route: 048

REACTIONS (2)
  - COVID-19 [Recovered/Resolved]
  - Condition aggravated [Recovered/Resolved]
